FAERS Safety Report 5882567-X (Version None)
Quarter: 2008Q3

REPORT INFORMATION
  Report Type: 
  Country: None (occurrence: None)
  Receive Date: 20080913
  Receipt Date: 20080807
  Transmission Date: 20090109
  Serious: No
  Sender: FDA-Public Use
  Company Number: US-ABBOTT-08P-163-0469512-00

PATIENT
  Sex: Female
  Weight: 73.548 kg

DRUGS (7)
  1. HUMIRA [Suspect]
     Indication: PSORIASIS
     Route: 058
     Dates: start: 20080701, end: 20080701
  2. HUMIRA [Suspect]
     Route: 058
  3. HUMIRA [Suspect]
     Route: 058
  4. LITHIUM CARBONATE [Concomitant]
     Indication: BIPOLAR I DISORDER
     Route: 048
     Dates: start: 19880101
  5. MULTIVITAMIN [Concomitant]
     Indication: MACULAR DEGENERATION
     Route: 048
     Dates: start: 20070101
  6. DETROL XL [Concomitant]
     Indication: INCONTINENCE
     Route: 048
     Dates: start: 20070101
  7. RANITIDINE [Concomitant]
     Indication: DYSPEPSIA
     Route: 048
     Dates: start: 20080701

REACTIONS (1)
  - INJECTION SITE HAEMATOMA [None]
